FAERS Safety Report 5145391-1 (Version None)
Quarter: 2006Q4

REPORT INFORMATION
  Report Type: 
  Country: None (occurrence: None)
  Receive Date: 20061101
  Receipt Date: 20061016
  Transmission Date: 20070319
  Serious: Yes (Life-Threatening, Hospitalization, Other)
  Sender: FDA-Public Use
  Company Number: DE-2006-023711

PATIENT
  Age: 47 Year
  Sex: Female
  Weight: 76 kg

DRUGS (8)
  1. BETAFERON(INTERFERON BETA - 1B) INJECTION, 250UG [Suspect]
     Indication: MULTIPLE SCLEROSIS
     Dosage: 250 UG,  EVERY 2D, SUBCUTANEOUS
     Route: 058
     Dates: start: 20050308, end: 20060527
  2. RED BLOOD CELLS [Concomitant]
  3. MIRENA [Concomitant]
  4. BELOC-ZOC-(METOPROLOL SUCCINATE) [Concomitant]
  5. FLUIMICIL [Concomitant]
  6. PANTOPRAZOLE SODIUM [Concomitant]
  7. KALIUM [Concomitant]
  8. LEVOTHYROXINE SODIUM [Concomitant]

REACTIONS (11)
  - ARTERIAL HAEMORRHAGE [None]
  - COMPARTMENT SYNDROME [None]
  - CONDITION AGGRAVATED [None]
  - DEEP VEIN THROMBOSIS [None]
  - DYSARTHRIA [None]
  - MULTIPLE SCLEROSIS [None]
  - PARTIAL SEIZURES [None]
  - PELVIC VENOUS THROMBOSIS [None]
  - PULMONARY EMBOLISM [None]
  - TREMOR [None]
  - VENA CAVA THROMBOSIS [None]
